FAERS Safety Report 4677267-8 (Version None)
Quarter: 2005Q2

REPORT INFORMATION
  Report Type: 
  Country: None (occurrence: None)
  Receive Date: 20050526
  Receipt Date: 20050516
  Transmission Date: 20051028
  Serious: No
  Sender: FDA-Public Use
  Company Number: 11157

PATIENT
  Age: 52 Year
  Sex: Male

DRUGS (2)
  1. METHOTREXATE [Suspect]
     Indication: PSORIASIS
     Dates: end: 19890101
  2. METHOTREXATE [Suspect]
     Indication: PSORIASIS
     Dates: start: 19940101

REACTIONS (4)
  - HEPATIC CIRRHOSIS [None]
  - HEPATIC FIBROSIS [None]
  - PORTAL HYPERTENSION [None]
  - VARICES OESOPHAGEAL [None]
